FAERS Safety Report 4560001-X (Version None)
Quarter: 2005Q1

REPORT INFORMATION
  Report Type: 
  Country: None (occurrence: None)
  Receive Date: 20050120
  Receipt Date: 20050120
  Transmission Date: 20050727
  Serious: No
  Sender: FDA-Public Use
  Company Number: None

PATIENT
  Age: 80 Year
  Sex: Male
  Weight: 84 kg

DRUGS (2)
  1. RISPERIDONE [Suspect]
     Indication: AGITATION
     Dosage: 1.0MG  Q8H  PO
     Route: 048
     Dates: start: 20041216, end: 20050105
  2. RISPERIDONE [Suspect]
     Indication: DEMENTIA
     Dosage: 1.0MG  Q8H  PO
     Route: 048
     Dates: start: 20041216, end: 20050105

REACTIONS (1)
  - LETHARGY [None]
